FAERS Safety Report 18492209 (Version 1)
Quarter: 2020Q4

REPORT INFORMATION
  Report Type: Other
  Country: US (occurrence: US)
  Receive Date: 20201111
  Receipt Date: 20201111
  Transmission Date: 20210114
  Serious: Yes (Other)
  Sender: FDA-Public Use
  Company Number: US-ROCHE-2709835

PATIENT
  Sex: Female

DRUGS (1)
  1. OCREVUS [Suspect]
     Active Substance: OCRELIZUMAB
     Indication: MULTIPLE SCLEROSIS
     Dosage: 300 MG IN 250 ML NS OVER 2.5 HRS ON DAY 1 AND 14, THEN 600 MG ONCE IN 6 MONTHS IN 500 ML OVER 3.5 HR
     Route: 042
     Dates: start: 20180309

REACTIONS (1)
  - Urinary tract infection [Not Recovered/Not Resolved]
